FAERS Safety Report 10418380 (Version 1)
Quarter: 2014Q3

REPORT INFORMATION
  Report Type: Report from Study
  Country: TR (occurrence: TR)
  Receive Date: 20140829
  Receipt Date: 20140829
  Transmission Date: 20150326
  Serious: Yes (Other)
  Sender: FDA-Public Use
  Company Number: TR-US-EMD SERONO, INC.-7315615

PATIENT
  Sex: Female
  Weight: 70 kg

DRUGS (2)
  1. REBIF [Suspect]
     Active Substance: INTERFERON BETA-1A
     Indication: MULTIPLE SCLEROSIS
  2. BRUFEN                             /00109201/ [Suspect]
     Active Substance: IBUPROFEN
     Indication: ANALGESIC THERAPY

REACTIONS (3)
  - Perineal cyst [Not Recovered/Not Resolved]
  - Vitamin B12 deficiency [Unknown]
  - Blood count abnormal [Unknown]

NARRATIVE: CASE EVENT DATE: 20140630
